FAERS Safety Report 19689605 (Version 3)
Quarter: 2021Q3

REPORT INFORMATION
  Report Type: Spontaneous
  Country: US (occurrence: US)
  Receive Date: 20210812
  Receipt Date: 20210827
  Transmission Date: 20211014
  Serious: No
  Sender: FDA-Public Use
  Company Number: US-BEH-2021134873

PATIENT
  Sex: Female

DRUGS (2)
  1. HIZENTRA [Suspect]
     Active Substance: HUMAN IMMUNOGLOBULIN G
     Indication: IDIOPATHIC INTERSTITIAL PNEUMONIA
     Dosage: 17 GRAM, QW
     Route: 058
     Dates: start: 202008
  2. HIZENTRA [Suspect]
     Active Substance: HUMAN IMMUNOGLOBULIN G
     Indication: IMMUNODEFICIENCY COMMON VARIABLE
     Dosage: 17 GRAM, QW
     Route: 058
     Dates: start: 20180112

REACTIONS (3)
  - Product prescribing issue [Unknown]
  - Sinusitis [Unknown]
  - Malaise [Unknown]
